FAERS Safety Report 8301789-1 (Version None)
Quarter: 2012Q2

REPORT INFORMATION
  Report Type: 
  Country: None (occurrence: None)
  Receive Date: 20120418
  Receipt Date: 20120418
  Transmission Date: 20120825
  Serious: Yes (Hospitalization)
  Sender: FDA-Public Use
  Company Number: None

PATIENT
  Sex: Female
  Weight: 110 kg

DRUGS (4)
  1. RHINOCORT [Concomitant]
  2. PIPERACILLIN AND TAZOBACTAM [Suspect]
     Indication: SEPSIS
     Dosage: 4.5 GRAM EVERY 8 HOURS INTRAVENOUS INFUSION
     Route: 042
     Dates: start: 20120228, end: 20120302
  3. TYLENOL (CAPLET) [Concomitant]
  4. PIPERACILLIN AND TAZOBACTAM [Suspect]
     Dosage: 40.5 GRAM EVERY 8 HOURS INTRAVENOUS INFUSION
     Route: 042
     Dates: start: 20120228, end: 20120302

REACTIONS (2)
  - PYREXIA [None]
  - DRUG ERUPTION [None]
